FAERS Safety Report 6772722-9 (Version None)
Quarter: 2010Q2

REPORT INFORMATION
  Report Type: 
  Country: None (occurrence: None)
  Receive Date: 20100615
  Receipt Date: 20100525
  Transmission Date: 20101027
  Serious: Yes (Hospitalization)
  Sender: FDA-Public Use
  Company Number: 2010SP028907

PATIENT
  Age: 53 Year
  Sex: Male
  Weight: 123 kg

DRUGS (10)
  1. PEGINTERFERON ALFA-2B [Suspect]
     Indication: HEPATIC CIRRHOSIS
     Dosage: 150 MCG; SC
     Route: 058
     Dates: start: 20100515, end: 20100522
  2. PEGINTERFERON ALFA-2B [Suspect]
     Indication: HEPATIC CIRRHOSIS
     Dosage: 150 MCG; SC
     Route: 058
     Dates: start: 20100529
  3. RIBAVIRIN [Suspect]
     Indication: HEPATIC CIRRHOSIS
     Dosage: 1400 MG; PO
     Route: 048
     Dates: start: 20100514, end: 20100521
  4. RIBAVIRIN [Suspect]
     Indication: HEPATIC CIRRHOSIS
     Dosage: 1400 MG; PO
     Route: 048
     Dates: start: 20100529
  5. HUMAN INSULIN [Concomitant]
  6. BARNIDIPINE [Concomitant]
  7. HYDROCHLORIDE [Concomitant]
  8. TELMISARTAN [Concomitant]
  9. THYDROCHLORITIAZIDE [Concomitant]
  10. RAMIPRIL [Concomitant]

REACTIONS (2)
  - RENAL COLIC [None]
  - VOMITING [None]
